FAERS Safety Report 13608078 (Version 1)
Quarter: 2017Q2

REPORT INFORMATION
  Report Type: Spontaneous
  Country: CN (occurrence: CN)
  Receive Date: 20170602
  Receipt Date: 20170602
  Transmission Date: 20170830
  Serious: Yes (Other)
  Sender: FDA-Public Use
  Company Number: CN-FRESENIUS KABI-FK201704749

PATIENT
  Age: 36 Year
  Weight: 87 kg

DRUGS (2)
  1. VOLUVEN [Suspect]
     Active Substance: HYDROXYETHYL STARCH 130/0.4
     Indication: CAESAREAN SECTION
     Route: 042
     Dates: start: 20170227, end: 20170227
  2. LIDOCAINE HYDROCHLORIDE. [Concomitant]
     Active Substance: LIDOCAINE HYDROCHLORIDE
     Indication: ANAESTHESIA
     Route: 008
     Dates: start: 20170227, end: 20170227

REACTIONS (3)
  - Pruritus [Recovered/Resolved]
  - Rash [Recovered/Resolved]
  - Blood pressure decreased [Recovered/Resolved]

NARRATIVE: CASE EVENT DATE: 20170227
